FAERS Safety Report 10179909 (Version 1)
Quarter: 2014Q2

REPORT INFORMATION
  Report Type: Spontaneous
  Country: NO (occurrence: None)
  Receive Date: 20140515
  Receipt Date: 20140515
  Transmission Date: 20141212
  Serious: Yes (Disabling)
  Sender: FDA-Public Use
  Company Number: FK201401641

PATIENT
  Age: 45 Year
  Sex: Female

DRUGS (2)
  1. PROPOFOL (PROPOFOL) [Suspect]
     Indication: SEDATION
     Route: 042
  2. REMIFENTANIL (REMIFENTANIL) [Suspect]
     Indication: SEDATION

REACTIONS (2)
  - Anosmia [None]
  - Ageusia [None]
